FAERS Safety Report 8926379 (Version 1)
Quarter: 2012Q4

REPORT INFORMATION
  Report Type: 
  Country: FR (occurrence: FR)
  Receive Date: 20121127
  Receipt Date: 20121127
  Transmission Date: 20130627
  Serious: Yes (Hospitalization)
  Sender: FDA-Public Use
  Company Number: FR-GLAXOSMITHKLINE-B0844300A

PATIENT
  Sex: Female

DRUGS (10)
  1. REVOLADE [Suspect]
     Indication: IDIOPATHIC THROMBOCYTOPENIC PURPURA
     Route: 048
     Dates: start: 20120413
  2. AERIUS [Concomitant]
     Indication: RASH PRURITIC
     Route: 048
     Dates: start: 20120502
  3. AVLOCARDYL LP [Concomitant]
     Route: 065
  4. CORTANCYL [Concomitant]
  5. EFFERALGAN [Concomitant]
  6. INSULATARD [Concomitant]
  7. VENLAFAXINE [Concomitant]
  8. ESOMEPRAZOLE [Concomitant]
  9. DIFFU K [Concomitant]
  10. NOVORAPID [Concomitant]

REACTIONS (2)
  - Platelet count decreased [Recovered/Resolved]
  - Drug ineffective [Unknown]
